FAERS Safety Report 7806300-7 (Version None)
Quarter: 2011Q4

REPORT INFORMATION
  Report Type: 
  Country: None (occurrence: None)
  Receive Date: 20111007
  Receipt Date: 20111007
  Transmission Date: 20120403
  Serious: Yes (Other)
  Sender: FDA-Public Use
  Company Number: None

PATIENT
  Age: 65 Year
  Sex: Female

DRUGS (2)
  1. CLONAZEPAM [Suspect]
     Indication: POST-TRAUMATIC STRESS DISORDER
     Dosage: CLONAZEPAM 0.5MG ONE AM TWO QHS PO (EARLY AUGUST/END OF JULY 2011)
     Route: 048
  2. CLONAZEPAM [Suspect]
     Indication: GENERALISED ANXIETY DISORDER
     Dosage: CLONAZEPAM 0.5MG ONE AM TWO QHS PO (EARLY AUGUST/END OF JULY 2011)
     Route: 048

REACTIONS (3)
  - PRODUCT SUBSTITUTION ISSUE [None]
  - PRODUCT MEASURED POTENCY ISSUE [None]
  - ANXIETY [None]
